FAERS Safety Report 8505445-6 (Version None)
Quarter: 2012Q3

REPORT INFORMATION
  Report Type: 
  Country: None (occurrence: None)
  Receive Date: 20120712
  Receipt Date: 20120709
  Transmission Date: 20120928
  Serious: Yes (Other)
  Sender: FDA-Public Use
  Company Number: CA-PFIZER INC-2012138232

PATIENT
  Age: 75 Year
  Sex: Male

DRUGS (2)
  1. GABAPENTIN [Suspect]
     Dosage: UNK
  2. LYRICA [Suspect]
     Dosage: UNK
     Dates: start: 20120611

REACTIONS (10)
  - DIZZINESS [None]
  - INSOMNIA [None]
  - DISTURBANCE IN ATTENTION [None]
  - EATING DISORDER SYMPTOM [None]
  - DECREASED APPETITE [None]
  - ARTERIAL OCCLUSIVE DISEASE [None]
  - DRY MOUTH [None]
  - CONSTIPATION [None]
  - CEREBROVASCULAR ACCIDENT [None]
  - BALANCE DISORDER [None]
